FAERS Safety Report 6356592-9 (Version None)
Quarter: 2009Q3

REPORT INFORMATION
  Report Type: 
  Country: None (occurrence: None)
  Receive Date: 20090910
  Receipt Date: 20090910
  Transmission Date: 20100115
  Serious: Yes (Other)
  Sender: FDA-Public Use
  Company Number: None

PATIENT
  Age: 28 Year
  Sex: Female
  Weight: 68.9 kg

DRUGS (10)
  1. VANCOMYCIN [Suspect]
     Indication: BETA HAEMOLYTIC STREPTOCOCCAL INFECTION
     Dates: start: 20090907, end: 20090907
  2. ACETAMINOPHEN [Concomitant]
  3. ADACEL [Concomitant]
  4. ALBUTEROL [Concomitant]
  5. FERROUS SULFATE TAB [Concomitant]
  6. IBUPROFEN [Concomitant]
  7. MAGNESIUM HYDROXIDE TAB [Concomitant]
  8. MYLANTA [Concomitant]
  9. PERCOCET [Concomitant]
  10. SIMETHICONE [Concomitant]

REACTIONS (5)
  - BURNING SENSATION [None]
  - ERYTHEMA [None]
  - INFUSION RELATED REACTION [None]
  - OEDEMA PERIPHERAL [None]
  - PRURITUS [None]
